FAERS Safety Report 10254616 (Version 1)
Quarter: 2014Q2

REPORT INFORMATION
  Report Type: Report from Study
  Country: US (occurrence: US)
  Receive Date: 20140624
  Receipt Date: 20140624
  Transmission Date: 20141212
  Serious: Yes (Death, Other)
  Sender: FDA-Public Use
  Company Number: PHEH2014US012457

PATIENT
  Age: 33 Year
  Sex: Male

DRUGS (13)
  1. AFINITOR [Suspect]
     Indication: ANGIOMYOLIPOMA
     Dosage: 2.5 MG, UNK
     Route: 048
     Dates: start: 20140617
  2. AFINITOR [Suspect]
     Dosage: 2.5 MG, UNK
     Route: 048
     Dates: start: 20140618
  3. LAMICTAL [Concomitant]
  4. PROZAC [Concomitant]
  5. OMEPRAZOLE [Concomitant]
  6. ALBUTEROL [Concomitant]
  7. LUVOX [Concomitant]
  8. RISPERDAL [Concomitant]
  9. ENALAPRIL [Concomitant]
  10. CLARITIN [Concomitant]
  11. PROZAC [Concomitant]
  12. PREVACID [Concomitant]
  13. ALBUTEROL [Concomitant]

REACTIONS (4)
  - Death [Fatal]
  - Convulsion [Unknown]
  - Fall [Unknown]
  - Head injury [Unknown]
